FAERS Safety Report 8988821 (Version 1)
Quarter: 2012Q4

REPORT INFORMATION
  Report Type: Spontaneous
  Country: US (occurrence: None)
  Receive Date: 20121218
  Receipt Date: 20121218
  Transmission Date: 20130627
  Serious: Yes (Hospitalization)
  Sender: FDA-Public Use
  Company Number: 2012VX005456

PATIENT
  Age: 64 Year
  Sex: Female

DRUGS (2)
  1. EFUDEX [Suspect]
     Indication: ACTINIC KERATOSIS
     Dosage: 1 week
     Route: 061
  2. EFUDEX [Suspect]
     Indication: SQUAMOUS CELL CARCINOMA
     Dosage: 1 week
     Route: 061

REACTIONS (16)
  - Application site erythema [None]
  - Pyrexia [None]
  - Chills [None]
  - Rash macular [None]
  - Fatigue [None]
  - Diarrhoea [None]
  - Dyspnoea [None]
  - Chromaturia [None]
  - Rash erythematous [None]
  - Pruritus [None]
  - Skin erosion [None]
  - Inflammation [None]
  - Alanine aminotransferase increased [None]
  - Aspartate aminotransferase increased [None]
  - Toxicity to various agents [None]
  - Pain [None]
